FAERS Safety Report 17639029 (Version 1)
Quarter: 2020Q2

REPORT INFORMATION
  Report Type: Report from Study
  Country: None (occurrence: US)
  Receive Date: 20200407
  Receipt Date: 20200407
  Transmission Date: 20200713
  Serious: No
  Sender: FDA-Public Use
  Company Number: US-BIOVITRUM-2019US0716

PATIENT
  Age: 60 Year
  Sex: Female

DRUGS (12)
  1. OMEPRAZOLE. [Concomitant]
     Active Substance: OMEPRAZOLE
  2. PROGESTERONE. [Concomitant]
     Active Substance: PROGESTERONE
  3. ARMOUR THYROID [Concomitant]
     Active Substance: THYROID, PORCINE
  4. DHEA [Concomitant]
     Active Substance: PRASTERONE
  5. FISH OIL [Concomitant]
     Active Substance: FISH OIL
  6. ESTRADIOL. [Concomitant]
     Active Substance: ESTRADIOL
  7. COLCRYS [Concomitant]
     Active Substance: COLCHICINE
  8. TESTOSTERONE. [Concomitant]
     Active Substance: TESTOSTERONE
  9. OXYCODONE [Concomitant]
     Active Substance: OXYCODONE
  10. VALIUM [Concomitant]
     Active Substance: DIAZEPAM
  11. KINERET [Suspect]
     Active Substance: ANAKINRA
     Indication: RHEUMATOID ARTHRITIS
     Route: 058
     Dates: start: 20190315
  12. TRAZODONE [Concomitant]
     Active Substance: TRAZODONE HYDROCHLORIDE

REACTIONS (2)
  - Liver function test increased [Unknown]
  - Injection site pain [Not Recovered/Not Resolved]

NARRATIVE: CASE EVENT DATE: 201903
